FAERS Safety Report 4803518-2 (Version None)
Quarter: 2005Q4

REPORT INFORMATION
  Report Type: 
  Country: None (occurrence: None)
  Receive Date: 20051014
  Receipt Date: 20051004
  Transmission Date: 20060501
  Serious: Yes (Hospitalization)
  Sender: FDA-Public Use
  Company Number: 2005124222

PATIENT
  Age: 41 Year
  Sex: Male
  Weight: 67 kg

DRUGS (3)
  1. ZARONTIN             (ETHOSUXIMIDE) [Suspect]
     Indication: PETIT MAL EPILEPSY
     Dosage: 1500 MG (500 MG, 3 IN 1 D), ORAL
     Route: 048
     Dates: start: 20050308
  2. DEPAKENE [Concomitant]
  3. CLOBAZAM                 (CLOBAZAM) [Concomitant]

REACTIONS (7)
  - AGGRESSION [None]
  - CONFUSIONAL STATE [None]
  - DELIRIUM [None]
  - DELUSION [None]
  - LIBIDO INCREASED [None]
  - PARANOIA [None]
  - PSYCHOTIC DISORDER [None]
